FAERS Safety Report 9814671 (Version 1)
Quarter: 2014Q1

REPORT INFORMATION
  Report Type: Spontaneous
  Country: US (occurrence: US)
  Receive Date: 20140113
  Receipt Date: 20140113
  Transmission Date: 20141002
  Serious: Yes (Hospitalization, Other)
  Sender: FDA-Public Use
  Company Number: CHPA2014US000590

PATIENT
  Age: 78 Year
  Sex: Female

DRUGS (4)
  1. EX-LAX MAX STR LAX PILLS SENNA [Suspect]
     Dosage: 3 DF, UNK
     Route: 048
  2. EX-LAX REG STR LAX PILLS SENNA [Suspect]
     Indication: BOWEL MOVEMENT IRREGULARITY
     Dosage: 3 DF, UNK
     Route: 048
     Dates: start: 20140105
  3. SULFUR [Suspect]
     Indication: CYSTITIS
     Dosage: UNK, UNK
     Route: 065
  4. EQUATE STOOL SOFTENER [Concomitant]

REACTIONS (6)
  - Loss of consciousness [Unknown]
  - Drug hypersensitivity [Not Recovered/Not Resolved]
  - Cystitis [Unknown]
  - Bowel movement irregularity [Unknown]
  - Incorrect dose administered [Unknown]
  - Drug ineffective [Unknown]
